FAERS Safety Report 16023144 (Version 1)
Quarter: 2019Q1

REPORT INFORMATION
  Report Type: Spontaneous
  Country: US (occurrence: US)
  Receive Date: 20190301
  Receipt Date: 20190301
  Transmission Date: 20190418
  Serious: Yes (Disabling, Other)
  Sender: FDA-Public Use
  Company Number: US-ABBVIE-19K-163-2685882-00

PATIENT
  Age: 49 Year
  Sex: Female
  Weight: 86.26 kg

DRUGS (1)
  1. MAVYRET [Suspect]
     Active Substance: GLECAPREVIR\PIBRENTASVIR
     Indication: PRODUCT USED FOR UNKNOWN INDICATION
     Route: 048

REACTIONS (7)
  - Hallucination [Unknown]
  - Loss of consciousness [Unknown]
  - Cardiac disorder [Unknown]
  - Blood pressure increased [Unknown]
  - Anxiety [Unknown]
  - Contusion [Unknown]
  - Fluid retention [Unknown]

NARRATIVE: CASE EVENT DATE: 20180828
